FAERS Safety Report 10191805 (Version 2)
Quarter: 2014Q2

REPORT INFORMATION
  Report Type: Spontaneous
  Country: US (occurrence: US)
  Receive Date: 20140523
  Receipt Date: 20140602
  Transmission Date: 20141212
  Serious: Yes (Hospitalization)
  Sender: FDA-Public Use
  Company Number: US-MALLINCKRODT-T201402211

PATIENT
  Age: 57 Year
  Sex: Female
  Weight: 77.55 kg

DRUGS (4)
  1. EXALGO [Suspect]
     Indication: PAIN
     Dosage: 16 MG, QD
     Route: 048
     Dates: start: 2014, end: 201404
  2. EXALGO [Suspect]
     Dosage: 8 MG, QD
     Route: 048
     Dates: start: 201312, end: 2014
  3. DILAUDID [Suspect]
     Indication: PRODUCT USED FOR UNKNOWN INDICATION
     Dosage: 2 MG, BID
     Route: 048
     Dates: start: 201404
  4. DILAUDID [Suspect]
     Dosage: 2 MG, TID
     Route: 065
     Dates: end: 201404

REACTIONS (1)
  - Overdose [Recovered/Resolved]
